FAERS Safety Report 11775284 (Version 1)
Quarter: 2015Q4

REPORT INFORMATION
  Report Type: Report from Study
  Country: US (occurrence: US)
  Receive Date: 20151125
  Receipt Date: 20151125
  Transmission Date: 20160304
  Serious: Yes (Hospitalization, Other)
  Sender: FDA-Public Use
  Company Number: US-AMGEN-USASL2015123416

PATIENT
  Age: 75 Year
  Sex: Male

DRUGS (1)
  1. ENBREL [Suspect]
     Active Substance: ETANERCEPT
     Indication: RHEUMATOID ARTHRITIS
     Dosage: 50 MG, QWK, SOMETIMES EVERY 8 OR 9 DAYS
     Route: 065
     Dates: start: 2000, end: 20151013

REACTIONS (5)
  - Myocardial infarction [Unknown]
  - Inappropriate schedule of drug administration [Unknown]
  - Mitral valve repair [Unknown]
  - Decreased immune responsiveness [Unknown]
  - Atrial fibrillation [Unknown]

NARRATIVE: CASE EVENT DATE: 2000
